FAERS Safety Report 7498489-7 (Version None)
Quarter: 2011Q2

REPORT INFORMATION
  Report Type: 
  Country: None (occurrence: None)
  Receive Date: 20110516
  Receipt Date: 20110505
  Transmission Date: 20111010
  Serious: Yes (Hospitalization)
  Sender: FDA-Public Use
  Company Number: 913853

PATIENT
  Age: 78 Year
  Sex: Female

DRUGS (5)
  1. DOXORUBICIN HYDROCHLORIDE [Suspect]
     Indication: CHEMOTHERAPY
     Dosage: 78 MG MILLIGRAM(S)   INTRAVENOUS (NOT OTHERWISE SPECIFIED)
     Route: 042
     Dates: start: 20070906, end: 20070906
  2. VINCRISTINE SULFATE [Suspect]
     Indication: CHEMOTHERAPY
     Dosage: 2 MG QD INTRAVENOUS (NOT OTHERWISE SPECIFIED)
     Route: 042
     Dates: start: 20070906
  3. CYCLOPHOSPHAMIDE [Suspect]
     Indication: CHEMOTHERAPY
     Dosage: 118 MG MILLIGRAM(S)  INTRAVENOUS (NOT OTHERWISE SPECIFIED)
     Route: 042
     Dates: start: 20070906
  4. NEULASTA [Suspect]
     Indication: CHEMOTHERAPY
     Dosage: 6 MG QD  SUBCUTANEOUS
     Route: 058
     Dates: start: 20070907
  5. (RITUXIMAB) [Suspect]
     Indication: CHEMOTHERAPY
     Dosage: 60 MG QD  INTRAVENOUS (NOT OTHERWISE SPECIFIED)
     Route: 042
     Dates: start: 20070906

REACTIONS (1)
  - FEBRILE NEUTROPENIA [None]
